FAERS Safety Report 26094681 (Version 1)
Quarter: 2025Q4

REPORT INFORMATION
  Report Type: Spontaneous
  Country: EU (occurrence: EU)
  Receive Date: 20251126
  Receipt Date: 20251126
  Transmission Date: 20260117
  Serious: Yes (Life-Threatening)
  Sender: AMGEN
  Company Number: EU-CELLTRION HEALTHCARE HUNGARY KFT- 2020DE030881

PATIENT

DRUGS (15)
  1. FILGRASTIM [Suspect]
     Active Substance: FILGRASTIM
     Indication: Prophylaxis
     Dosage: UNK, CYCLICAL
     Route: 065
  2. RITUXIMAB [Suspect]
     Active Substance: RITUXIMAB
     Indication: Central nervous system lymphoma
     Dosage: 375 MG/M2, EVERY 2 WEEKS (CYCLE 1-3)
     Route: 040
  3. ACYCLOVIR [Suspect]
     Active Substance: ACYCLOVIR
     Indication: Product used for unknown indication
     Dosage: UNK, CYCLICAL
     Route: 065
  4. PREDNISOLONE [Suspect]
     Active Substance: PREDNISOLONE
     Indication: Central nervous system lymphoma
     Dosage: 3 MG, EVERY 3 WEEKS (CYCLE 4+6) VIA INTRACEREBROVENTICULAR ROUTE (ICV)
  5. PREDNISOLONE [Suspect]
     Active Substance: PREDNISOLONE
     Dosage: 3 MG, EVERY 2 WEEKS (CYCLE 5) VIA INTRACEREBROVENTICULAR ROUTE (ICV)
  6. SULFAMETHOXAZOLE\TRIMETHOPRIM [Suspect]
     Active Substance: SULFAMETHOXAZOLE\TRIMETHOPRIM
     Indication: Product used for unknown indication
     Dosage: UNK, CYCLICAL
     Route: 065
  7. CYTARABINE [Suspect]
     Active Substance: CYTARABINE
     Indication: Central nervous system lymphoma
     Dosage: 10 MG, EVERY 2 WEEKS (CYCLE 5)
     Route: 065
  8. CYTARABINE [Suspect]
     Active Substance: CYTARABINE
     Dosage: 10 MG, EVERY 3 WEEKS (CYCLE 4+6)
     Route: 065
  9. CYTARABINE [Suspect]
     Active Substance: CYTARABINE
     Dosage: 3000 MG/M2, EVERY 3 WEEKS (CYCLE 4+6)
     Route: 040
  10. IFOSFAMIDE [Suspect]
     Active Substance: IFOSFAMIDE
     Indication: Central nervous system lymphoma
     Dosage: 800 MILLIGRAM/SQ. METER, Q2WK (CYCLE 1-3)
     Route: 040
  11. IFOSFAMIDE [Suspect]
     Active Substance: IFOSFAMIDE
     Dosage: 800 MILLIGRAM/SQ. METER, Q2WK (CYCLE 5)
     Route: 040
  12. METHOTREXATE [Suspect]
     Active Substance: METHOTREXATE
     Indication: Central nervous system lymphoma
     Dosage: 4000 MILLIGRAM/SQ. METER, Q2WK (CYCLE 1-3)
     Route: 040
  13. METHOTREXATE [Suspect]
     Active Substance: METHOTREXATE
     Dosage: 4000 MILLIGRAM/SQ. METER, Q2WK (CYCLE 5)
     Route: 040
  14. METHOTREXATE [Suspect]
     Active Substance: METHOTREXATE
     Dosage: 2.5 MILLIGRAM, Q3WK (CYCLE 4+6)
     Route: 040
  15. METHOTREXATE [Suspect]
     Active Substance: METHOTREXATE
     Dosage: 2.5 MILLIGRAM, Q2WK(CYCLE 5)
     Route: 040

REACTIONS (1)
  - Blood potassium decreased [Unknown]
